FAERS Safety Report 6337386-7 (Version None)
Quarter: 2009Q3

REPORT INFORMATION
  Report Type: 
  Country: None (occurrence: None)
  Receive Date: 20090901
  Receipt Date: 20090901
  Transmission Date: 20100115
  Serious: Yes (Other)
  Sender: FDA-Public Use
  Company Number: None

PATIENT
  Age: 57 Year
  Sex: Male
  Weight: 83.9 kg

DRUGS (2)
  1. OXCARBAZEPINE [Suspect]
     Dosage: 600 MG BID PO
     Route: 048
     Dates: start: 20090521
  2. CLONAZEPAM [Suspect]
     Dosage: 1 MG QID PO
     Route: 048

REACTIONS (2)
  - DEPRESSION [None]
  - STRESS [None]
